FAERS Safety Report 6899996-8 (Version None)
Quarter: 2010Q3

REPORT INFORMATION
  Report Type: 
  Country: None (occurrence: None)
  Receive Date: 20100803
  Receipt Date: 20100728
  Transmission Date: 20110219
  Serious: Yes (Other)
  Sender: FDA-Public Use
  Company Number: GB-BRISTOL-MYERS SQUIBB COMPANY-15217920

PATIENT
  Age: 60 Year
  Sex: Female

DRUGS (2)
  1. CETUXIMAB [Suspect]
     Indication: BREAST CANCER
     Dosage: MOST RECENT INFUSION ON 11JUL2008.TOTAL INFUSIONS:2.STRENGTH 5MG/ML
     Route: 042
     Dates: start: 20080610, end: 20080711
  2. CISPLATIN [Suspect]
     Indication: BREAST CANCER
     Dosage: MOST RECENT INFUSION ON 104JUL2008.TOTAL INFUSIONS:2
     Route: 042
     Dates: start: 20080610, end: 20080704

REACTIONS (8)
  - ABDOMINAL PAIN [None]
  - ATELECTASIS [None]
  - HYPERCOAGULATION [None]
  - LYMPHANGIOSIS CARCINOMATOSA [None]
  - MALIGNANT NEOPLASM PROGRESSION [None]
  - PLEURAL EFFUSION [None]
  - PULMONARY EMBOLISM [None]
  - SUBCUTANEOUS NODULE [None]
